FAERS Safety Report 16413843 (Version 3)
Quarter: 2019Q3

REPORT INFORMATION
  Report Type: Spontaneous
  Country: NL (occurrence: NL)
  Receive Date: 20190611
  Receipt Date: 20190712
  Transmission Date: 20191004
  Serious: Yes (Life-Threatening, Hospitalization, Other)
  Sender: FDA-Public Use
  Company Number: NL-AUROBINDO-AUR-APL-2019-031693

PATIENT

DRUGS (4)
  1. CLOZAPINE. [Suspect]
     Active Substance: CLOZAPINE
     Indication: INTELLECTUAL DISABILITY
     Dosage: 4200 MILLIGRAM,INTOXICATION WITH 4200 MG, UNK
     Route: 065
  2. CLOZAPINE. [Suspect]
     Active Substance: CLOZAPINE
     Indication: SCHIZOPHRENIA
     Dosage: 300 MILLIGRAM, ONCE A DAY,(300 MG, QD (SEVEN DAYS AFTER INTOXICATION, CLOZAPINE WAS RESTARTED))
     Route: 065
  3. CLOZAPINE. [Suspect]
     Active Substance: CLOZAPINE
     Dosage: 300 MILLIGRAM, ONCE A DAY (300 MG, QD (SEVEN DAYS AFTER INTOXICATION, CLOZAPINE WAS RESTARTED) )
     Route: 048
  4. DESMOPRESSIN ACETATE. [Concomitant]
     Active Substance: DESMOPRESSIN ACETATE
     Indication: PRODUCT USED FOR UNKNOWN INDICATION
     Dosage: UNK
     Route: 065

REACTIONS (13)
  - Blood creatine phosphokinase increased [Recovered/Resolved]
  - Tachycardia [Recovered/Resolved]
  - Toxicity to various agents [Unknown]
  - Confusional state [Recovered/Resolved]
  - Dysarthria [Recovered/Resolved]
  - Hallucination, visual [Recovered/Resolved]
  - Intentional overdose [Recovered/Resolved]
  - Disorientation [Recovered/Resolved]
  - Adverse event [Unknown]
  - Overdose [Unknown]
  - Delirium [Recovered/Resolved]
  - Stupor [Recovered/Resolved]
  - Psychomotor hyperactivity [Recovered/Resolved]
